FAERS Safety Report 25969061 (Version 3)
Quarter: 2025Q4

REPORT INFORMATION
  Report Type: Spontaneous
  Country: JP (occurrence: JP)
  Receive Date: 20251028
  Receipt Date: 20251114
  Transmission Date: 20260118
  Serious: Yes (Hospitalization)
  Sender: ABBVIE
  Company Number: JP-ABBVIE-6517713

PATIENT
  Age: 46 Year
  Sex: Female

DRUGS (3)
  1. HUMIRA [Suspect]
     Active Substance: ADALIMUMAB
     Indication: Colitis ulcerative
     Route: 058
     Dates: start: 202410, end: 20251012
  2. Clostridium butyricum [Concomitant]
     Indication: Colitis ulcerative
     Dosage: 6 TABLET
     Route: 048
     Dates: start: 2024
  3. MESALAMINE [Concomitant]
     Active Substance: MESALAMINE
     Indication: Colitis ulcerative
     Dosage: 4 GRAM
     Route: 048
     Dates: start: 2024

REACTIONS (4)
  - Systemic lupus erythematosus [Not Recovered/Not Resolved]
  - Antinuclear antibody increased [Unknown]
  - Systemic lupus erythematosus [Recovered/Resolved]
  - Gait disturbance [Unknown]

NARRATIVE: CASE EVENT DATE: 20250901
